FAERS Safety Report 21650510 (Version 1)
Quarter: 2022Q4

REPORT INFORMATION
  Report Type: Spontaneous
  Country: US (occurrence: None)
  Receive Date: 20221124
  Receipt Date: 20221124
  Transmission Date: 20230112
  Serious: Yes (Life-Threatening, Hospitalization)
  Sender: FDA-Public Use
  Company Number: None

PATIENT
  Age: 46 Year
  Sex: Female
  Weight: 117 kg

DRUGS (13)
  1. HUMIRA [Suspect]
     Active Substance: ADALIMUMAB
     Indication: Hidradenitis
     Dosage: OTHER QUANTITY : 1 INJECTION(S);?OTHER FREQUENCY : EVERY OTHER WEEK;?
     Route: 058
     Dates: start: 20221020, end: 20221117
  2. GUANFACINE [Concomitant]
     Active Substance: GUANFACINE
  3. NALTREXONE [Concomitant]
     Active Substance: NALTREXONE
  4. VYVANSE [Concomitant]
     Active Substance: LISDEXAMFETAMINE DIMESYLATE
  5. ESZOPICLONE [Concomitant]
     Active Substance: ESZOPICLONE
  6. CLONAZEPAM [Concomitant]
     Active Substance: CLONAZEPAM
  7. FEXOFENADINE [Concomitant]
     Active Substance: FEXOFENADINE HYDROCHLORIDE
  8. FAMOTIDINE [Concomitant]
     Active Substance: FAMOTIDINE
  9. IBUPROFEN [Concomitant]
     Active Substance: IBUPROFEN
  10. VITAMIN D3 [Concomitant]
     Active Substance: CHOLECALCIFEROL
  11. CoQ10 ubiquinol, [Concomitant]
  12. BENADRYL [Concomitant]
     Active Substance: DIPHENHYDRAMINE HYDROCHLORIDE
  13. FISH OIL [Concomitant]
     Active Substance: FISH OIL

REACTIONS (11)
  - Pain [None]
  - Pyrexia [None]
  - Rash [None]
  - Hepatic failure [None]
  - Blood pressure increased [None]
  - Heart rate increased [None]
  - Loss of consciousness [None]
  - Seizure [None]
  - Peripheral swelling [None]
  - Peripheral swelling [None]
  - Drug reaction with eosinophilia and systemic symptoms [None]

NARRATIVE: CASE EVENT DATE: 20221117
